FAERS Safety Report 15157095 (Version 7)
Quarter: 2022Q2

REPORT INFORMATION
  Report Type: Spontaneous
  Country: AT (occurrence: AT)
  Receive Date: 20180718
  Receipt Date: 20220424
  Transmission Date: 20220721
  Serious: Yes (Death, Hospitalization)
  Sender: FDA-Public Use
  Company Number: AT-TEVA-2018-AT-926235

PATIENT
  Age: 80 Year
  Sex: Female

DRUGS (41)
  1. TRAMADOL [Suspect]
     Active Substance: TRAMADOL
     Indication: Pain
     Dosage: 200 MILLIGRAM DAILY; ONCE AT NIGHT
     Route: 065
  2. GABAPENTIN [Suspect]
     Active Substance: GABAPENTIN
     Indication: Pain
     Dosage: 0.5 PER 1 DAY.
     Route: 065
  3. PRAMIPEXOLE [Suspect]
     Active Substance: PRAMIPEXOLE
     Indication: Restless legs syndrome
     Dosage: 2.1 MILLIGRAM DAILY; ONCE IN THE MORNING
     Route: 065
  4. DULOXETINE [Suspect]
     Active Substance: DULOXETINE
     Indication: Pain
     Dosage: 60 MILLIGRAM DAILY; ONCE IN THE MORNING
     Route: 065
  5. DULOXETINE [Suspect]
     Active Substance: DULOXETINE
     Indication: Depression
  6. CLOPIDOGREL [Suspect]
     Active Substance: CLOPIDOGREL BISULFATE
     Indication: Coronary artery disease
     Dosage: 75 MILLIGRAM DAILY; ONCE IN THE MORNING
     Route: 065
  7. BISOPROLOL [Suspect]
     Active Substance: BISOPROLOL
     Indication: Coronary artery disease
     Dosage: IN TWO DIVIDED DOSES, ONE AT MORNING AND ONE AT NIGHT
     Route: 065
  8. HYDROMORPHONE [Suspect]
     Active Substance: HYDROMORPHONE
     Indication: Pain
     Dosage: 4 MILLIGRAM DAILY; ONCE IN THE MORNING
     Route: 065
  9. SERTRALINE [Suspect]
     Active Substance: SERTRALINE HYDROCHLORIDE
     Indication: Depression
     Dosage: 50 MILLIGRAM DAILY; ONCE IN THE MORNING
     Route: 065
  10. SERTRALINE [Suspect]
     Active Substance: SERTRALINE HYDROCHLORIDE
     Indication: Panic attack
  11. RISPERIDONE [Suspect]
     Active Substance: RISPERIDONE
     Dosage: HALF DOSE AT NIGHT
     Route: 065
  12. ALPRAZOLAM [Suspect]
     Active Substance: ALPRAZOLAM
     Indication: Fear
     Dosage: IN TWO DIVIDED DOSES, ONE AT MORNING AND ONE AT NIGHT
     Route: 065
  13. ALPRAZOLAM [Suspect]
     Active Substance: ALPRAZOLAM
     Indication: Dyspnoea
  14. LEVODOPA [Suspect]
     Active Substance: LEVODOPA
     Indication: Restless legs syndrome
     Dosage: 100 MILLIGRAM DAILY; ONCE AT NIGHT
     Route: 065
  15. ASPIRIN [Suspect]
     Active Substance: ASPIRIN
     Indication: Coronary artery disease
     Dosage: 100 MILLIGRAM DAILY; ONCE IN THE MORNING
     Route: 065
  16. BENSERAZIDE [Suspect]
     Active Substance: BENSERAZIDE
     Indication: Restless legs syndrome
     Dosage: 25 MILLIGRAM DAILY; ONCE AT NIGHT
     Route: 065
  17. ACETAZOLAMIDE [Suspect]
     Active Substance: ACETAZOLAMIDE
     Indication: Alkalosis
     Dosage: 50 MILLIGRAM DAILY; ONCE IN THE MORNING
     Route: 065
  18. ACETAZOLAMIDE [Suspect]
     Active Substance: ACETAZOLAMIDE
     Indication: Hypercapnia
  19. PREDNISONE [Concomitant]
     Active Substance: PREDNISONE
     Indication: Chronic obstructive pulmonary disease
     Dosage: 25 MILLIGRAM DAILY; ONCE IN THE MORNING
     Route: 065
  20. PREDNISONE [Concomitant]
     Active Substance: PREDNISONE
     Indication: Chronic obstructive pulmonary disease
     Dosage: 5 MILLIGRAM DAILY; ONCE IN THE MORNING
     Route: 065
  21. TIOTROPIUM [Concomitant]
     Active Substance: TIOTROPIUM
     Indication: Chronic obstructive pulmonary disease
     Dosage: 18 MICROGRAM DAILY; PUFF ONCE IN THE MORNING
     Route: 065
  22. SALMETEROL [Concomitant]
     Active Substance: SALMETEROL
     Indication: Chronic obstructive pulmonary disease
     Dosage: TWO PUFFS IN THE MORNING AND TWO PUFFS AT NIGHT
     Route: 065
  23. FLUTICASONE [Concomitant]
     Active Substance: FLUTICASONE
     Indication: Chronic obstructive pulmonary disease
     Dosage: TWO PUFFS IN THE MORNING AND TWO PUFFS AT NIGHT
     Route: 065
  24. FENOTEROL [Concomitant]
     Active Substance: FENOTEROL
     Indication: Chronic obstructive pulmonary disease
     Dosage: PUFFS AS NEEDED IN CASE OF DYSPNOEA; MAXIMUM 4X2
     Route: 065
  25. IPRATROPIUM [Concomitant]
     Active Substance: IPRATROPIUM
     Indication: Chronic obstructive pulmonary disease
     Dosage: PUFFS AS NEEDED IN CASE OF DYSPNOEA; MAXIMUM 4X2
     Route: 065
  26. ACETYLCYSTEINE [Concomitant]
     Active Substance: ACETYLCYSTEINE
     Indication: Chronic obstructive pulmonary disease
     Dosage: 600 MILLIGRAM DAILY; ONCE IN THE MORNING; FOR 7 DAYS
     Route: 065
  27. THEOPHYLLINE [Concomitant]
     Active Substance: THEOPHYLLINE
     Indication: Chronic obstructive pulmonary disease
     Dosage: 0.5 PER 1 DAY.
     Route: 065
  28. DICLOFENAC [Concomitant]
     Active Substance: DICLOFENAC
     Indication: Pain
     Dosage: AS NEEDED IN CASE OF PAIN; MAXIMUM 2X1
     Route: 065
  29. LEVOTHYROXINE [Concomitant]
     Active Substance: LEVOTHYROXINE
     Indication: Hypothyroidism
     Dosage: 75 MICROGRAM DAILY; ONCE IN THE MORNING
     Route: 065
  30. LEVOTHYROXINE [Concomitant]
     Active Substance: LEVOTHYROXINE
     Indication: Hypothyroidism
     Dosage: HALF DOSE ONCE IN THE MORNING
     Route: 065
  31. ATORVASTATIN [Concomitant]
     Active Substance: ATORVASTATIN
     Indication: Hypercholesterolaemia
     Dosage: 40 MILLIGRAM DAILY; ONCE AT NIGHT
     Route: 065
  32. ALGELDRATE [Concomitant]
     Active Substance: ALGELDRATE
     Indication: Gastrooesophageal reflux disease
     Dosage: AS NEEDED, MAXIMUM 2X1
     Route: 065
  33. VITAMIN D [Concomitant]
     Active Substance: VITAMIN D NOS
     Indication: Vitamin D deficiency
     Dosage: 16000 I.E.; WEEKLY
     Route: 065
  34. OMEPRAZOLE [Concomitant]
     Active Substance: OMEPRAZOLE
     Indication: Gastritis
     Dosage: 0.5 PER 1 DAY.
     Route: 065
  35. DIOSMIN [Concomitant]
     Active Substance: DIOSMIN
     Indication: Peripheral venous disease
     Dosage: 450 MILLIGRAM DAILY; ONCE IN THE MORNING
     Route: 065
  36. HESPERIDIN [Concomitant]
     Active Substance: HESPERIDIN
     Indication: Peripheral venous disease
     Dosage: 50 MILLIGRAM DAILY; ONCE IN THE MORNING
     Route: 065
  37. IBANDRONIC ACID [Concomitant]
     Active Substance: IBANDRONIC ACID
     Indication: Osteoporosis
     Dosage: EVERY 3 MONTHS
     Route: 065
  38. FUROSEMIDE [Concomitant]
     Active Substance: FUROSEMIDE
     Indication: Diuretic therapy
     Route: 065
  39. DIPHENHYDRAMINE [Concomitant]
     Active Substance: DIPHENHYDRAMINE
     Indication: Antiallergic therapy
     Route: 065
  40. PIPERACILLIN SODIUM\TAZOBACTAM SODIUM [Concomitant]
     Active Substance: PIPERACILLIN SODIUM\TAZOBACTAM SODIUM
     Route: 065
  41. MORPHINE HYDROCHLORIDE [Concomitant]
     Active Substance: MORPHINE HYDROCHLORIDE
     Route: 065

REACTIONS (3)
  - Death [Fatal]
  - Delirium [Unknown]
  - Off label use [Unknown]
